FAERS Safety Report 25779478 (Version 1)
Quarter: 2025Q3

REPORT INFORMATION
  Report Type: Spontaneous
  Country: US (occurrence: US)
  Receive Date: 20250909
  Receipt Date: 20250909
  Transmission Date: 20251021
  Serious: Yes (Other)
  Sender: INSMED
  Company Number: US-INSMED, INC.-2025-03469-US

PATIENT
  Age: 78 Year
  Sex: Female

DRUGS (1)
  1. ARIKAYCE [Suspect]
     Active Substance: AMIKACIN
     Indication: Mycobacterial infection
     Dosage: 590 MILLIGRAM, QD
     Route: 055
     Dates: start: 20250812, end: 202508

REACTIONS (4)
  - Brain neoplasm [Not Recovered/Not Resolved]
  - Deafness [Unknown]
  - Ear discomfort [Not Recovered/Not Resolved]
  - Head discomfort [Not Recovered/Not Resolved]

NARRATIVE: CASE EVENT DATE: 20250801
